FAERS Safety Report 12456127 (Version 2)
Quarter: 2016Q3

REPORT INFORMATION
  Report Type: Report from Study
  Country: TW (occurrence: TW)
  Receive Date: 20160610
  Receipt Date: 20160817
  Transmission Date: 20161109
  Serious: No
  Sender: FDA-Public Use
  Company Number: TW-ABBVIE-16P-153-1645415-00

PATIENT

DRUGS (3)
  1. OMBITASVIR/PARITAPREVIR/RITONAVIR [Suspect]
     Active Substance: OMBITASVIR\PARITAPREVIR\RITONAVIR
     Indication: CHRONIC HEPATITIS C
     Route: 048
  2. DASABUVIR [Suspect]
     Active Substance: DASABUVIR
     Indication: CHRONIC HEPATITIS C
     Route: 048
  3. RIBAVIRIN. [Concomitant]
     Active Substance: RIBAVIRIN
     Indication: CHRONIC HEPATITIS C

REACTIONS (10)
  - Myoclonus [Unknown]
  - Palpitations [Unknown]
  - Malaise [Unknown]
  - Insomnia [Unknown]
  - Dysuria [Unknown]
  - Myalgia [Unknown]
  - Asthenia [Unknown]
  - Depression [Unknown]
  - Dyspnoea [Unknown]
  - Rash [Unknown]
